FAERS Safety Report 9582688 (Version 1)
Quarter: 2013Q4

REPORT INFORMATION
  Report Type: Spontaneous
  Country: US (occurrence: US)
  Receive Date: 20131002
  Receipt Date: 20131002
  Transmission Date: 20140711
  Serious: No
  Sender: FDA-Public Use
  Company Number: US-AMGEN-USASP2013042274

PATIENT
  Age: 52 Year
  Sex: Female
  Weight: 63.49 kg

DRUGS (8)
  1. ENBREL [Suspect]
     Indication: PRODUCT USED FOR UNKNOWN INDICATION
     Dosage: 50 MG, ONCE A WEEK
     Route: 058
  2. CELEBREX [Concomitant]
     Dosage: 100 MG, UNK
  3. AMLODIPINE [Concomitant]
     Dosage: 10 MG, UNK
  4. PREDNISONE [Concomitant]
     Dosage: 5 MG, UNK
  5. ARAVA [Concomitant]
     Dosage: 10 MG, UNK
  6. CALCIUM + VITAMIN D                /01483701/ [Concomitant]
     Dosage: UNK
  7. FOLIC ACID [Concomitant]
     Dosage: UNK
  8. RESTASIS [Concomitant]
     Dosage: EMU 0.05 %, UNK

REACTIONS (3)
  - Dry mouth [Unknown]
  - Dry eye [Unknown]
  - Condition aggravated [Unknown]
